FAERS Safety Report 24985490 (Version 1)
Quarter: 2025Q1

REPORT INFORMATION
  Report Type: Spontaneous
  Country: US (occurrence: None)
  Receive Date: 20250219
  Receipt Date: 20250219
  Transmission Date: 20250408
  Serious: Yes (Hospitalization)
  Sender: FDA-CTU
  Company Number: None

PATIENT
  Age: 32 Year
  Sex: Female
  Weight: 52.4 kg

DRUGS (3)
  1. FLUOROURACIL [Suspect]
     Active Substance: FLUOROURACIL
     Dates: end: 20250122
  2. IRINOTECAN [Suspect]
     Active Substance: IRINOTECAN
     Dates: end: 20250122
  3. OXALIPLATIN [Suspect]
     Active Substance: OXALIPLATIN
     Dates: end: 20250122

REACTIONS (8)
  - Cough [None]
  - Leukocytosis [None]
  - Moraxella test positive [None]
  - Bile duct stone [None]
  - Liver function test increased [None]
  - Aspartate aminotransferase increased [None]
  - Alanine aminotransferase increased [None]
  - Cholangitis [None]

NARRATIVE: CASE EVENT DATE: 20250207
